FAERS Safety Report 10486037 (Version 1)
Quarter: 2014Q3

REPORT INFORMATION
  Report Type: Spontaneous
  Country: US (occurrence: None)
  Receive Date: 20140929
  Receipt Date: 20140929
  Transmission Date: 20150326
  Serious: Yes (Hospitalization)
  Sender: FDA-Public Use
  Company Number: 20140612

PATIENT
  Age: 75 Year
  Sex: Female

DRUGS (6)
  1. ULTRAN (TRAMADOL) [Concomitant]
  2. LIPITOR [Concomitant]
     Active Substance: ATORVASTATIN CALCIUM
  3. INJECTAFER [Suspect]
     Active Substance: FERRIC CARBOXYMALTOSE
     Indication: IRON DEFICIENCY ANAEMIA
     Dosage: 750 MG IN 100ML NS
     Route: 042
     Dates: start: 20140905, end: 20140905
  4. HUMALOG INSULIN (INSULIN LISPRO) [Concomitant]
  5. COZAAR [Concomitant]
     Active Substance: LOSARTAN POTASSIUM
  6. ADVIL [Concomitant]
     Active Substance: IBUPROFEN

REACTIONS (7)
  - Convulsion [None]
  - Diabetic ketoacidosis [None]
  - Nausea [None]
  - Blood glucose increased [None]
  - Vomiting [None]
  - Infusion site pain [None]
  - Confusional state [None]

NARRATIVE: CASE EVENT DATE: 20140905
